FAERS Safety Report 20465208 (Version 1)
Quarter: 2022Q1

REPORT INFORMATION
  Report Type: Spontaneous
  Country: US (occurrence: US)
  Receive Date: 20220211
  Receipt Date: 20220211
  Transmission Date: 20220424
  Serious: Yes (Other)
  Sender: FDA-Public Use
  Company Number: US-NOVARTISPH-NVSC2022US031995

PATIENT
  Age: 48 Year
  Sex: Female

DRUGS (6)
  1. RANITIDINE [Suspect]
     Active Substance: RANITIDINE
     Dosage: 75 MG,150 MG,75 MG TWICE A DAY THEN MOVED TO 150 MG ONCE A DAY,OTHER,75 MG TWICE A DAY, THEN MOVED T
     Route: 048
     Dates: start: 200601, end: 201912
  2. RANITIDINE [Suspect]
     Active Substance: RANITIDINE
     Indication: Dyspepsia
  3. RANITIDINE [Suspect]
     Active Substance: RANITIDINE
     Indication: Gastrooesophageal reflux disease
  4. RANITIDINE [Suspect]
     Active Substance: RANITIDINE
     Dosage: 75 MG,150 MG,75 MG TWICE A DAY THEN MOVED TO 150 MG ONCE A DAY,OTHER,75 MG TWICE A DAY, THEN MOVED T
     Route: 048
     Dates: start: 200601, end: 201912
  5. RANITIDINE [Suspect]
     Active Substance: RANITIDINE
     Indication: Dyspepsia
  6. RANITIDINE [Suspect]
     Active Substance: RANITIDINE
     Indication: Gastrooesophageal reflux disease

REACTIONS (1)
  - Breast cancer [Recovered/Resolved]

NARRATIVE: CASE EVENT DATE: 20150801
